FAERS Safety Report 14897016 (Version 1)
Quarter: 2018Q2

REPORT INFORMATION
  Report Type: Spontaneous
  Country: US (occurrence: US)
  Receive Date: 20180427
  Receipt Date: 20180427
  Transmission Date: 20180711
  Serious: Yes (Hospitalization, Disabling)
  Sender: FDA-Public Use
  Company Number: None

PATIENT
  Age: 61 Year
  Sex: Female
  Weight: 83.25 kg

DRUGS (13)
  1. OXYCODONE [Concomitant]
     Active Substance: OXYCODONE
  2. PANTAPROZOLE [Concomitant]
     Active Substance: PANTOPRAZOLE SODIUM
  3. TRAZODONE [Concomitant]
     Active Substance: TRAZODONE HYDROCHLORIDE
  4. FLONASE [Concomitant]
     Active Substance: FLUTICASONE PROPIONATE
  5. VIVELLE [Concomitant]
     Active Substance: ESTRADIOL
  6. VITAMIN D [Concomitant]
     Active Substance: CHOLECALCIFEROL
  7. DAILY VITAMIN [Concomitant]
     Active Substance: VITAMINS
  8. VALSARTAN AND HYDROCHLOROTHIAZIDE [Concomitant]
     Active Substance: HYDROCHLOROTHIAZIDE\VALSARTAN
  9. POTASSIUM [Concomitant]
     Active Substance: POTASSIUM
  10. DIAZEPAM. [Concomitant]
     Active Substance: DIAZEPAM
  11. CLOPRIDOGEL 75MG [Suspect]
     Active Substance: CLOPIDOGREL BISULFATE
     Indication: STENT PLACEMENT
     Dosage: ?          QUANTITY:1 TABLET(S);?
     Route: 048
     Dates: start: 20170814, end: 20180410
  12. COREG [Concomitant]
     Active Substance: CARVEDILOL
  13. ACETAMINOPHEN. [Concomitant]
     Active Substance: ACETAMINOPHEN

REACTIONS (6)
  - Chest pain [None]
  - Oesophageal spasm [None]
  - Abdominal pain upper [None]
  - Migraine [None]
  - Dysphagia [None]
  - Vascular headache [None]

NARRATIVE: CASE EVENT DATE: 20180216
